FAERS Safety Report 22611329 (Version 1)
Quarter: 2023Q2

REPORT INFORMATION
  Report Type: Spontaneous
  Country: EG (occurrence: EG)
  Receive Date: 20230616
  Receipt Date: 20230616
  Transmission Date: 20230722
  Serious: Yes (Life-Threatening, Hospitalization, Other)
  Sender: FDA-Public Use
  Company Number: EG-MALLINCKRODT-MNK202302596

PATIENT
  Age: 34 Year
  Sex: Male

DRUGS (7)
  1. OFIRMEV [Suspect]
     Active Substance: ACETAMINOPHEN
     Indication: Antipyresis
     Dosage: 1 DOSAGE FORM AS NECESSARY
     Route: 042
     Dates: start: 20221023
  2. HALOPERIDOL [Concomitant]
     Active Substance: HALOPERIDOL
     Indication: Bipolar disorder
     Route: 048
     Dates: start: 202210, end: 20221103
  3. OLAPEX [Concomitant]
     Indication: Bipolar disorder
     Route: 048
     Dates: start: 202210, end: 20221103
  4. INDERAL [Concomitant]
     Active Substance: PROPRANOLOL HYDROCHLORIDE
     Indication: Bipolar disorder
  5. COGINTOL [Concomitant]
     Indication: Bipolar disorder
  6. PRIANIL [Concomitant]
     Indication: Bipolar disorder
  7. DIVAKOTE [Concomitant]
     Indication: Bipolar disorder

REACTIONS (6)
  - Altered state of consciousness [Recovered/Resolved]
  - Infusion site erythema [Recovered/Resolved]
  - Hypersensitivity [Recovered/Resolved]
  - Pyrexia [Recovered/Resolved]
  - Heat stroke [Recovered/Resolved]
  - Laboratory test abnormal [Recovered/Resolved]

NARRATIVE: CASE EVENT DATE: 20221030
